FAERS Safety Report 24626660 (Version 9)
Quarter: 2025Q1

REPORT INFORMATION
  Report Type: Spontaneous
  Country: AU (occurrence: AU)
  Receive Date: 20241115
  Receipt Date: 20250304
  Transmission Date: 20250408
  Serious: Yes (Other)
  Sender: GILEAD
  Company Number: AU-GLAXOSMITHKLINE-AU2024APC094461

PATIENT
  Age: 83 Year
  Sex: Female
  Weight: 56.7 kg

DRUGS (52)
  1. AMBRISENTAN [Suspect]
     Active Substance: AMBRISENTAN
     Indication: Pulmonary arterial hypertension
     Dosage: 10 MG, QD (STARTED 7 YEARS AGO (EXACT DATE UNKNOWN))
     Route: 048
  2. UPTRAVI [Suspect]
     Active Substance: SELEXIPAG
     Indication: Product used for unknown indication
     Dosage: 400 UG, QD,NOCTE
     Route: 048
     Dates: start: 20240812
  3. UPTRAVI [Suspect]
     Active Substance: SELEXIPAG
     Dosage: 400 UG, QD EVENING
     Route: 048
  4. UPTRAVI [Suspect]
     Active Substance: SELEXIPAG
     Dosage: 400 UG, BID (2 X 200 MCG TABLETS)
     Route: 048
     Dates: start: 20241022
  5. UPTRAVI [Suspect]
     Active Substance: SELEXIPAG
     Dosage: 200 UG, QD MORNING
     Route: 048
  6. UPTRAVI [Suspect]
     Active Substance: SELEXIPAG
     Dosage: 20 MG, BID20 MG, BID COMMENCED 1 YEAR AGO EXACT DATE UNDISCLOSED
     Route: 048
  7. UPTRAVI [Suspect]
     Active Substance: SELEXIPAG
     Dosage: 20 MG, BID
     Route: 048
  8. UPTRAVI [Suspect]
     Active Substance: SELEXIPAG
     Dosage: 400 UG, BID
     Route: 048
  9. UPTRAVI [Suspect]
     Active Substance: SELEXIPAG
     Dosage: 20 MG, BID
     Route: 048
  10. UPTRAVI [Suspect]
     Active Substance: SELEXIPAG
     Route: 048
  11. UPTRAVI [Suspect]
     Active Substance: SELEXIPAG
     Route: 048
  12. UPTRAVI [Suspect]
     Active Substance: SELEXIPAG
     Route: 048
  13. UPTRAVI [Suspect]
     Active Substance: SELEXIPAG
     Route: 048
  14. UPTRAVI [Suspect]
     Active Substance: SELEXIPAG
     Route: 048
  15. UPTRAVI [Suspect]
     Active Substance: SELEXIPAG
     Route: 048
  16. UPTRAVI [Suspect]
     Active Substance: SELEXIPAG
     Route: 048
  17. UPTRAVI [Suspect]
     Active Substance: SELEXIPAG
     Route: 048
  18. UPTRAVI [Suspect]
     Active Substance: SELEXIPAG
     Route: 048
  19. UPTRAVI [Suspect]
     Active Substance: SELEXIPAG
     Route: 048
  20. UPTRAVI [Suspect]
     Active Substance: SELEXIPAG
     Route: 048
  21. UPTRAVI [Suspect]
     Active Substance: SELEXIPAG
     Route: 048
  22. UPTRAVI [Suspect]
     Active Substance: SELEXIPAG
     Route: 048
  23. UPTRAVI [Suspect]
     Active Substance: SELEXIPAG
     Route: 048
  24. UPTRAVI [Suspect]
     Active Substance: SELEXIPAG
     Route: 048
  25. UPTRAVI [Suspect]
     Active Substance: SELEXIPAG
     Route: 048
  26. UPTRAVI [Suspect]
     Active Substance: SELEXIPAG
     Route: 048
  27. UPTRAVI [Suspect]
     Active Substance: SELEXIPAG
     Route: 048
  28. UPTRAVI [Suspect]
     Active Substance: SELEXIPAG
     Dosage: 400 MG, QD
     Route: 048
     Dates: start: 20250201
  29. UPTRAVI [Suspect]
     Active Substance: SELEXIPAG
     Route: 048
  30. UPTRAVI [Suspect]
     Active Substance: SELEXIPAG
     Route: 048
  31. UPTRAVI [Suspect]
     Active Substance: SELEXIPAG
     Route: 048
  32. UPTRAVI [Suspect]
     Active Substance: SELEXIPAG
     Route: 048
  33. UPTRAVI [Suspect]
     Active Substance: SELEXIPAG
     Route: 048
  34. TADALAFIL [Concomitant]
     Active Substance: TADALAFIL
     Indication: Product used for unknown indication
     Dosage: 2 DOSAGE FORM, QD (COMMENCED 1 YEAR AGO-EXACT DATE UNDISCLOSED)
     Route: 048
  35. ELIQUIS [Concomitant]
     Active Substance: APIXABAN
     Indication: Product used for unknown indication
     Dosage: 2.5 MG, BID
     Route: 048
  36. CRESTOR [Concomitant]
     Active Substance: ROSUVASTATIN CALCIUM
     Indication: Product used for unknown indication
     Dosage: 10 MG, QD
     Route: 048
  37. ESOMEPRAZOLE [Concomitant]
     Active Substance: ESOMEPRAZOLE
     Indication: Product used for unknown indication
     Dosage: 20 MG, QD, NOCTE
     Route: 048
  38. ESOMEPRAZOLE [Concomitant]
     Active Substance: ESOMEPRAZOLE
     Dosage: 20 MG, QD (20 MG, QD, NOCTE)
     Route: 048
  39. ESOMEPRAZOLE [Concomitant]
     Active Substance: ESOMEPRAZOLE
     Route: 048
  40. ALLOPURINOL [Concomitant]
     Active Substance: ALLOPURINOL
     Indication: Product used for unknown indication
     Dosage: 100 MG, QD
     Route: 048
     Dates: start: 20240724
  41. TRELEGY ELLIPTA [Concomitant]
     Active Substance: FLUTICASONE FUROATE\UMECLIDINIUM BROMIDE\VILANTEROL TRIFENATATE
     Indication: Product used for unknown indication
     Dosage: 1 PUFF(S), QD, 100 MCG
     Route: 055
  42. PROLIA [Concomitant]
     Active Substance: DENOSUMAB
     Indication: Product used for unknown indication
     Route: 042
  43. PROLIA [Concomitant]
     Active Substance: DENOSUMAB
     Route: 042
  44. IRON [Concomitant]
     Active Substance: IRON
     Indication: Product used for unknown indication
     Route: 042
  45. IRON [Concomitant]
     Active Substance: IRON
     Route: 048
  46. SPAN K [Concomitant]
     Indication: Product used for unknown indication
     Route: 065
     Dates: end: 20240714
  47. FUROSEMIDE [Concomitant]
     Active Substance: FUROSEMIDE
     Indication: Product used for unknown indication
     Dosage: 40 MG, QD
     Route: 048
  48. FUROSEMIDE [Concomitant]
     Active Substance: FUROSEMIDE
     Dosage: 2.5 MG, BID
  49. ALDACTONE [Concomitant]
     Active Substance: SPIRONOLACTONE
     Indication: Product used for unknown indication
     Dosage: 25 MG, QD
     Route: 048
     Dates: start: 20240724
  50. VITAMIN D3 [Concomitant]
     Active Substance: CHOLECALCIFEROL
     Indication: Product used for unknown indication
     Dosage: 1000 IU, QD
     Route: 048
  51. PANADOL [Concomitant]
     Active Substance: ACETAMINOPHEN
     Indication: Product used for unknown indication
     Route: 048
  52. VARICELLA-ZOSTER VIRUS STRAIN OKA/MERCK LIVE ANTIGEN [Concomitant]
     Active Substance: VARICELLA-ZOSTER VIRUS STRAIN OKA/MERCK LIVE ANTIGEN
     Indication: Prophylaxis
     Dates: start: 20240923

REACTIONS (19)
  - Squamous cell carcinoma [Recovered/Resolved]
  - Blood potassium decreased [Recovered/Resolved]
  - Blood iron decreased [Recovered/Resolved]
  - Blood potassium increased [Recovered/Resolved]
  - Dyspnoea [Recovered/Resolved]
  - Fatigue [Not Recovered/Not Resolved]
  - Pain in jaw [Not Recovered/Not Resolved]
  - Sleep disorder [Recovered/Resolved]
  - Joint swelling [Recovering/Resolving]
  - Diarrhoea [Recovering/Resolving]
  - Facial discomfort [Not Recovered/Not Resolved]
  - Tooth injury [Unknown]
  - Muscle tightness [Unknown]
  - Flushing [Recovering/Resolving]
  - Dyspnoea exertional [Unknown]
  - Musculoskeletal chest pain [Not Recovered/Not Resolved]
  - Headache [Not Recovered/Not Resolved]
  - Cardiac discomfort [Recovering/Resolving]
  - Poor quality sleep [Not Recovered/Not Resolved]

NARRATIVE: CASE EVENT DATE: 20240801
